FAERS Safety Report 21112559 (Version 1)
Quarter: 2022Q3

REPORT INFORMATION
  Report Type: Spontaneous
  Country: US (occurrence: None)
  Receive Date: 20220721
  Receipt Date: 20220721
  Transmission Date: 20221027
  Serious: Yes (Life-Threatening, Hospitalization, Other)
  Sender: FDA-Public Use
  Company Number: None

PATIENT
  Age: 35 Year
  Sex: Female
  Weight: 126 kg

DRUGS (2)
  1. MAGNESIUM CITRATE LEMON [Suspect]
     Active Substance: MAGNESIUM CITRATE
     Indication: Constipation
     Dosage: OTHER STRENGTH : OUNCES;?OTHER QUANTITY : 10 OUNCE(S);?OTHER FREQUENCY : AT ONE TIME;?
     Route: 048
     Dates: start: 20220315, end: 20220315
  2. MAGNESIUM CITRATE LEMON [Suspect]
     Active Substance: MAGNESIUM CITRATE
     Indication: Abdominal distension

REACTIONS (2)
  - Internal haemorrhage [None]
  - Sepsis [None]

NARRATIVE: CASE EVENT DATE: 20220322
